FAERS Safety Report 4827505-3 (Version None)
Quarter: 2005Q4

REPORT INFORMATION
  Report Type: 
  Country: None (occurrence: None)
  Receive Date: 20051114
  Receipt Date: 20051102
  Transmission Date: 20060501
  Serious: Yes (Other)
  Sender: FDA-Public Use
  Company Number: IT-BRISTOL-MYERS SQUIBB COMPANY-13167697

PATIENT

DRUGS (2)
  1. PARAPLATIN [Suspect]
  2. DEXAMETHASONE [Suspect]

REACTIONS (2)
  - GENERALISED OEDEMA [None]
  - WEIGHT INCREASED [None]
